FAERS Safety Report 8554168-6 (Version None)
Quarter: 2012Q3

REPORT INFORMATION
  Report Type: 
  Country: None (occurrence: None)
  Receive Date: 20120731
  Receipt Date: 20120726
  Transmission Date: 20120928
  Serious: Yes (Other)
  Sender: FDA-Public Use
  Company Number: PHHY2012MX065156

PATIENT
  Sex: Female

DRUGS (5)
  1. RITALIN [Suspect]
     Indication: BRAIN INJURY
     Dosage: 10 MG, DAILY
     Dates: start: 19920701
  2. RITALIN [Suspect]
     Indication: NARCOLEPSY
  3. DOLO-NEUROBION FORTE [Concomitant]
     Indication: BACK PAIN
     Dosage: 1 DF, DAILY
     Dates: start: 20120401
  4. RITALIN [Suspect]
     Indication: PERINATAL BRAIN DAMAGE
  5. OMEPRAZOLE [Concomitant]
     Indication: GASTRITIS
     Dosage: 1 DF, DAILY

REACTIONS (3)
  - MUSCULAR WEAKNESS [None]
  - APHASIA [None]
  - FEELING ABNORMAL [None]
